FAERS Safety Report 5072759-4 (Version None)
Quarter: 2006Q3

REPORT INFORMATION
  Report Type: 
  Country: None (occurrence: None)
  Receive Date: 20060807
  Receipt Date: 20060726
  Transmission Date: 20061208
  Serious: Yes (Other)
  Sender: FDA-Public Use
  Company Number: IT-BRISTOL-MYERS SQUIBB COMPANY-13454871

PATIENT
  Age: 77 Year
  Sex: Female

DRUGS (4)
  1. ARIPIPRAZOLE [Suspect]
     Indication: DEMENTIA
     Route: 048
  2. QUETIAPINE FUMARATE [Concomitant]
     Indication: DEMENTIA
     Dosage: 100 X 3 MG/DAY
     Dates: start: 20020501
  3. ASPIRIN [Concomitant]
     Indication: ANTIPLATELET THERAPY
  4. CLONAZEPAM [Concomitant]

REACTIONS (1)
  - PLEUROTHOTONUS [None]
